FAERS Safety Report 19141713 (Version 1)
Quarter: 2021Q2

REPORT INFORMATION
  Report Type: Spontaneous
  Country: IT (occurrence: IT)
  Receive Date: 20210415
  Receipt Date: 20210415
  Transmission Date: 20210717
  Serious: Yes (Death, Hospitalization, Other)
  Sender: FDA-Public Use
  Company Number: IT-TEVA-2021-IT-1900217

PATIENT
  Age: 69 Year
  Sex: Female

DRUGS (2)
  1. PREDNISONE. [Suspect]
     Active Substance: PREDNISONE
     Indication: THROMBOTIC THROMBOCYTOPENIC PURPURA
     Dosage: 1 MG/KG DAILY;
     Route: 065
  2. RITUXIMAB. [Suspect]
     Active Substance: RITUXIMAB
     Indication: THROMBOTIC THROMBOCYTOPENIC PURPURA
     Route: 065

REACTIONS (6)
  - Endocarditis staphylococcal [Fatal]
  - Scleroderma renal crisis [Recovered/Resolved]
  - Cardiomyopathy [Fatal]
  - Staphylococcal infection [Fatal]
  - Cardiogenic shock [Fatal]
  - Sepsis [Fatal]
